FAERS Safety Report 8680086 (Version 2)
Quarter: 2013Q2

REPORT INFORMATION
  Report Type: Spontaneous
  Country: KR (occurrence: KR)
  Receive Date: 20120724
  Receipt Date: 20130619
  Transmission Date: 20140414
  Serious: Yes (Other)
  Sender: FDA-Public Use
  Company Number: KR-ROCHE-1088280

PATIENT
  Age: 50 Year
  Sex: Female

DRUGS (1)
  1. BONVIVA [Suspect]
     Indication: OSTEOPOROSIS
     Route: 042

REACTIONS (4)
  - Thrombophlebitis [Unknown]
  - Injection site swelling [Unknown]
  - Pain [Unknown]
  - Pyrexia [Recovered/Resolved]
